FAERS Safety Report 6605165-9 (Version None)
Quarter: 2010Q1

REPORT INFORMATION
  Report Type: 
  Country: None (occurrence: None)
  Receive Date: 20100226
  Receipt Date: 20100218
  Transmission Date: 20100710
  Serious: Yes (Other)
  Sender: FDA-Public Use
  Company Number: DE-WATSON-2010-01895

PATIENT
  Age: 23 Year
  Sex: Female

DRUGS (1)
  1. TRELSTAR DEPOT [Suspect]
     Indication: IN VITRO FERTILISATION
     Dosage: 3.75 MG, SINGLE
     Route: 058
     Dates: start: 20080823, end: 20080823

REACTIONS (1)
  - OVARIAN HYPERSTIMULATION SYNDROME [None]
